FAERS Safety Report 7452330-7 (Version None)
Quarter: 2011Q2

REPORT INFORMATION
  Report Type: 
  Country: None (occurrence: None)
  Receive Date: 20110502
  Receipt Date: 20110412
  Transmission Date: 20111010
  Serious: Yes (Death, Hospitalization, Other)
  Sender: FDA-Public Use
  Company Number: US-BAYER-200940275NA

PATIENT
  Age: 60 Year
  Sex: Male
  Weight: 115 kg

DRUGS (19)
  1. VASOPRESSIN [Concomitant]
     Dosage: 4 UNITS/HOUR
     Route: 042
     Dates: start: 20061125, end: 20061125
  2. MILRINONE [Concomitant]
     Dosage: 0.5
     Dates: start: 20061221
  3. MILRINONE [Concomitant]
     Dosage: 0.25 MCG/KG/MIN
     Route: 042
     Dates: start: 20061125, end: 20061125
  4. HEPARIN [Concomitant]
     Dosage: ONE DOSE 420 MG, ONE DOSE 250 MG
     Route: 042
     Dates: start: 20061125, end: 20061125
  5. PHENYLEPHRINE HCL [Concomitant]
     Dosage: 80
     Route: 042
     Dates: start: 20061226, end: 20061226
  6. TRASYLOL [Suspect]
     Dosage: 2,000,000 KIU,THEN 50ML/HOUR
     Route: 042
     Dates: start: 20061226, end: 20061226
  7. DOPAMINE HCL [Concomitant]
     Dosage: 2 MCG/KG/MINUTE
     Route: 042
     Dates: start: 20061125, end: 20061125
  8. ETOMIDATE [Concomitant]
     Dosage: 20
     Route: 042
     Dates: start: 20061221, end: 20061221
  9. TRASYLOL [Suspect]
     Dosage: 200 CC THEN 50ML/HOUR
     Route: 042
     Dates: start: 20061221, end: 20061221
  10. VASOPRESSIN [Concomitant]
     Dosage: 8
     Route: 042
     Dates: start: 20061226, end: 20061226
  11. LEVOPHED [Concomitant]
     Dosage: 7
     Route: 042
     Dates: start: 20061221
  12. EPINEPHRINE [Concomitant]
     Dosage: 2 MCG/MINUTE
     Route: 042
     Dates: start: 20061125, end: 20061125
  13. HEPARIN [Concomitant]
     Dosage: 400 MG/100 MG
     Dates: start: 20061226, end: 20061226
  14. DOBUTAMINE HYDROCHLORIDE [Concomitant]
     Dosage: 2.5MCG/KG/MINUTE
     Route: 042
     Dates: start: 20061125, end: 20061125
  15. MILRINONE [Concomitant]
     Dosage: 0.2
     Dates: start: 20061226, end: 20061226
  16. DOPAMINE HCL [Concomitant]
     Dosage: 5
     Dates: start: 20061221
  17. LOPRESSOR [Concomitant]
     Dosage: 500 MG, UNK
     Route: 042
     Dates: start: 20061226, end: 20061226
  18. TRASYLOL [Suspect]
     Indication: VENTRICULAR ASSIST DEVICE INSERTION
     Dosage: 2,000,000 KIU LOADING THEN 50CC/HOUR
     Route: 042
     Dates: start: 20061125, end: 20061125
  19. LEVOPHED [Concomitant]
     Dosage: 4/5
     Route: 042
     Dates: start: 20061125, end: 20061125

REACTIONS (13)
  - FEAR [None]
  - STRESS [None]
  - ANXIETY [None]
  - UNEVALUABLE EVENT [None]
  - ANHEDONIA [None]
  - RENAL IMPAIRMENT [None]
  - EMOTIONAL DISTRESS [None]
  - MULTI-ORGAN FAILURE [None]
  - DEATH [None]
  - PAIN [None]
  - INJURY [None]
  - RENAL INJURY [None]
  - RENAL FAILURE [None]
